FAERS Safety Report 10594203 (Version 2)
Quarter: 2015Q1

REPORT INFORMATION
  Report Type: Report from Study
  Country: FI (occurrence: FI)
  Receive Date: 20141119
  Receipt Date: 20150205
  Transmission Date: 20150720
  Serious: Yes (Other)
  Sender: FDA-Public Use
  Company Number: FI-RB PHARMACEUTICALS LIMITED-RB-73071-2014

PATIENT
  Age: 32 Year
  Sex: Male

DRUGS (7)
  1. SUBOXONE [Suspect]
     Active Substance: BUPRENORPHINE HYDROCHLORIDE\NALOXONE HYDROCHLORIDE
     Dosage: LESS THAN ONCE A WEEK
     Route: 048
  2. SUBOXONE [Suspect]
     Active Substance: BUPRENORPHINE HYDROCHLORIDE\NALOXONE HYDROCHLORIDE
     Dosage: LESS THAN ONCE A WEEK
     Route: 045
  3. SUBUTEX [Suspect]
     Active Substance: BUPRENORPHINE HYDROCHLORIDE
     Indication: DRUG DEPENDENCE
     Dosage: TAKEN FOR 15 YEARS
     Route: 065
  4. CODEINE [Suspect]
     Active Substance: CODEINE
     Dosage: LESS THAN ONCE A WEEK
     Route: 048
  5. SUBOXONE [Suspect]
     Active Substance: BUPRENORPHINE HYDROCHLORIDE\NALOXONE HYDROCHLORIDE
     Indication: DRUG DEPENDENCE
     Dosage: LESS THAN ONCE A WEEK
     Route: 051
  6. CODEINE [Suspect]
     Active Substance: CODEINE
     Indication: PRODUCT USED FOR UNKNOWN INDICATION
     Dosage: LESS THAN ONCE A WEEK
     Route: 051
  7. MORPHINE/ OPIUM [Suspect]
     Active Substance: MORPHINE
     Indication: PRODUCT USED FOR UNKNOWN INDICATION
     Dosage: LESS THAN ONCE A WEEK
     Route: 051

REACTIONS (5)
  - Substance abuse [Not Recovered/Not Resolved]
  - Mental impairment [Not Recovered/Not Resolved]
  - Intentional product misuse [Not Recovered/Not Resolved]
  - Hepatitis C [Unknown]
  - Drug dependence [Unknown]
